FAERS Safety Report 9228567 (Version 1)
Quarter: 2013Q2

REPORT INFORMATION
  Report Type: Report from Study
  Country: FR (occurrence: FR)
  Receive Date: 20130412
  Receipt Date: 20130412
  Transmission Date: 20140414
  Serious: Yes (Hospitalization)
  Sender: FDA-Public Use
  Company Number: FR-ROCHE-1212155

PATIENT
  Age: 42 Year
  Sex: Female
  Weight: 80 kg

DRUGS (3)
  1. CLAFORAN [Concomitant]
  2. FLAGYL [Concomitant]
  3. ALTEPLASE [Suspect]
     Indication: PULMONARY EMBOLISM
     Dosage: 45 MG (50 MG, BOLUS)
     Route: 040
     Dates: start: 20111115, end: 20111115

REACTIONS (1)
  - Pleural effusion [Recovered/Resolved]
